FAERS Safety Report 6945990-8 (Version None)
Quarter: 2010Q3

REPORT INFORMATION
  Report Type: 
  Country: None (occurrence: None)
  Receive Date: 20100827
  Receipt Date: 20100820
  Transmission Date: 20110219
  Serious: Yes (Hospitalization)
  Sender: FDA-Public Use
  Company Number: GB-AMGEN-KDC432593

PATIENT
  Sex: Male

DRUGS (6)
  1. VECTIBIX [Suspect]
     Dates: start: 20100809
  2. EPIRUBICIN [Suspect]
     Dates: start: 20100809
  3. OXALIPLATIN [Suspect]
     Dates: start: 20100809
  4. CAPECITABINE [Suspect]
     Dates: start: 20100809
  5. METFORMIN [Concomitant]
  6. OMEPRAZOLE [Concomitant]

REACTIONS (4)
  - CONSTIPATION [None]
  - DEHYDRATION [None]
  - HYPOPHAGIA [None]
  - VOMITING [None]
